FAERS Safety Report 4406053-9 (Version None)
Quarter: 2004Q3

REPORT INFORMATION
  Report Type: 
  Country: None (occurrence: None)
  Receive Date: 20040723
  Receipt Date: 20040401
  Transmission Date: 20050211
  Serious: No
  Sender: FDA-Public Use
  Company Number: US-GLAXOSMITHKLINE-A0505561A

PATIENT
  Age: 46 Year
  Sex: Female

DRUGS (13)
  1. AVANDIA [Suspect]
     Dosage: 8MG PER DAY
     Route: 048
  2. HUMALOG [Concomitant]
  3. GLUCOPHAGE [Concomitant]
  4. DIOVAN [Concomitant]
  5. LASIX [Concomitant]
  6. INDERAL [Concomitant]
  7. LISINOPRIL [Concomitant]
  8. LIPITOR [Concomitant]
  9. PROTONIX [Concomitant]
  10. BEXTRA [Concomitant]
  11. ALBUTEROL [Concomitant]
  12. ASMACORT [Concomitant]
  13. ZAROXOLYN [Concomitant]

REACTIONS (1)
  - OEDEMA [None]
